FAERS Safety Report 19204790 (Version 1)
Quarter: 2021Q2

REPORT INFORMATION
  Report Type: Spontaneous
  Country: US (occurrence: US)
  Receive Date: 20210430
  Receipt Date: 20210430
  Transmission Date: 20210717
  Serious: Yes (Hospitalization)
  Sender: FDA-Public Use
  Company Number: None

PATIENT
  Age: 62 Year
  Sex: Female

DRUGS (15)
  1. ATORVASTATIN [Concomitant]
     Active Substance: ATORVASTATIN
  2. BUMETANIDE. [Concomitant]
     Active Substance: BUMETANIDE
  3. MAGNESIUM?OX [Concomitant]
  4. METOPROL SUC [Concomitant]
  5. METRONIDAZOL [Concomitant]
     Active Substance: METRONIDAZOLE
  6. POT CL MICRO [Concomitant]
  7. FLUOXETINE [Concomitant]
     Active Substance: FLUOXETINE HYDROCHLORIDE
  8. LISINOPRIL. [Concomitant]
     Active Substance: LISINOPRIL
  9. SILDENAFIL. [Suspect]
     Active Substance: SILDENAFIL
     Indication: PULMONARY ARTERIAL HYPERTENSION
     Route: 048
     Dates: start: 20180411
  10. CLINDAMYCIN. [Concomitant]
     Active Substance: CLINDAMYCIN
  11. SPIRONOLACT [Concomitant]
     Active Substance: SPIRONOLACTONE
  12. DOXYCYCL HYC [Concomitant]
  13. FEROSUL [Concomitant]
     Active Substance: FERROUS SULFATE
  14. XIFAXAN [Concomitant]
     Active Substance: RIFAXIMIN
  15. GABAPENTIN. [Concomitant]
     Active Substance: GABAPENTIN

REACTIONS (1)
  - Joint dislocation [None]
